FAERS Safety Report 5004149-4 (Version None)
Quarter: 2006Q2

REPORT INFORMATION
  Report Type: 
  Country: None (occurrence: None)
  Receive Date: 20060517
  Receipt Date: 20060505
  Transmission Date: 20061013
  Serious: Yes (Hospitalization)
  Sender: FDA-Public Use
  Company Number: US-JNJFOC-20060501942

PATIENT
  Sex: Male
  Weight: 64.86 kg

DRUGS (11)
  1. RAZADYNE [Suspect]
     Indication: DRUG USE FOR UNKNOWN INDICATION
     Route: 048
  2. BLINDED STUDY MEDICATION [Suspect]
     Indication: CARDIAC FAILURE
  3. ENALAPRIL MALEATE [Concomitant]
  4. FINASTERIDE [Concomitant]
  5. PAROXETINE HYDROCHLORIDE [Concomitant]
  6. CLOPIDOGREL BISULFATE [Concomitant]
  7. ALENDRONATE SODIUM [Concomitant]
  8. FLUVASTATIN SODIUM [Concomitant]
  9. FRUSEMIDE [Concomitant]
  10. INSULIN [Concomitant]
  11. CARVEDILOL [Concomitant]

REACTIONS (10)
  - ANOREXIA [None]
  - ASTHENIA [None]
  - ATELECTASIS [None]
  - BLOOD CREATININE INCREASED [None]
  - BLOOD GLUCOSE INCREASED [None]
  - BLOOD UREA INCREASED [None]
  - BRAIN NATRIURETIC PEPTIDE INCREASED [None]
  - EJECTION FRACTION DECREASED [None]
  - PLEURAL EFFUSION [None]
  - VASCULAR CALCIFICATION [None]
